FAERS Safety Report 14293366 (Version 3)
Quarter: 2018Q1

REPORT INFORMATION
  Report Type: Spontaneous
  Country: US (occurrence: US)
  Receive Date: 20171215
  Receipt Date: 20180202
  Transmission Date: 20180509
  Serious: No
  Sender: FDA-Public Use
  Company Number: US-BIOGEN-2017BI00495279

PATIENT
  Age: 63 Year
  Sex: Female

DRUGS (1)
  1. TYSABRI [Suspect]
     Active Substance: NATALIZUMAB
     Indication: MULTIPLE SCLEROSIS
     Route: 042
     Dates: start: 20170619

REACTIONS (9)
  - Arthralgia [Not Recovered/Not Resolved]
  - Multiple sclerosis [Unknown]
  - Dizziness [Unknown]
  - Bacterial infection [Unknown]
  - Viral infection [Unknown]
  - Cardiac disorder [Unknown]
  - Trigger finger [Not Recovered/Not Resolved]
  - Asthma [Unknown]
  - Fatigue [Not Recovered/Not Resolved]

NARRATIVE: CASE EVENT DATE: 20171123
